FAERS Safety Report 15732483 (Version 1)
Quarter: 2018Q4

REPORT INFORMATION
  Report Type: Spontaneous
  Country: US (occurrence: US)
  Receive Date: 20181217
  Receipt Date: 20181217
  Transmission Date: 20190205
  Serious: No
  Sender: FDA-Public Use
  Company Number: US-VIFOR (INTERNATIONAL) INC.-VIT-2018-11154

PATIENT
  Sex: Male

DRUGS (14)
  1. RENVELA [Concomitant]
     Active Substance: SEVELAMER CARBONATE
  2. TRAZODONE HYDROCHLORIDE. [Concomitant]
     Active Substance: TRAZODONE HYDROCHLORIDE
  3. VELTASSA [Suspect]
     Active Substance: PATIROMER
     Route: 048
     Dates: start: 2017
  4. ACETAMINOPHEN. [Concomitant]
     Active Substance: ACETAMINOPHEN
  5. ALLOPURINOL. [Concomitant]
     Active Substance: ALLOPURINOL
  6. DIGOXIN. [Concomitant]
     Active Substance: DIGOXIN
  7. WARFARIN SODIUM. [Concomitant]
     Active Substance: WARFARIN SODIUM
  8. CALCIUM ACETATE. [Concomitant]
     Active Substance: CALCIUM ACETATE
  9. METOPROLOL TARTRATE. [Concomitant]
     Active Substance: METOPROLOL TARTRATE
  10. ASPIRIN. [Concomitant]
     Active Substance: ASPIRIN
  11. VELTASSA [Suspect]
     Active Substance: PATIROMER
     Indication: HYPERKALAEMIA
     Route: 048
     Dates: start: 20170512
  12. B-COMPLEX FOLLIC ACID [Concomitant]
  13. OMEPRAZOLE. [Concomitant]
     Active Substance: OMEPRAZOLE
  14. OMEGA 3 [Concomitant]
     Active Substance: OMEGA-3 FATTY ACIDS

REACTIONS (1)
  - Off label use [Unknown]

NARRATIVE: CASE EVENT DATE: 2017
